FAERS Safety Report 8348189-6 (Version None)
Quarter: 2012Q2

REPORT INFORMATION
  Report Type: 
  Country: None (occurrence: None)
  Receive Date: 20120509
  Receipt Date: 20120508
  Transmission Date: 20120825
  Serious: Yes (Hospitalization)
  Sender: FDA-Public Use
  Company Number: IT-BAYER-2012-045101

PATIENT
  Age: 61 Year
  Sex: Female

DRUGS (1)
  1. ASPIRIN [Suspect]
     Indication: BACK PAIN
     Dosage: 1 DF, PRN
     Route: 048
     Dates: start: 20120212, end: 20120213

REACTIONS (3)
  - DIZZINESS [None]
  - SYNCOPE [None]
  - FACE INJURY [None]
